FAERS Safety Report 6042282-9 (Version None)
Quarter: 2009Q1

REPORT INFORMATION
  Report Type: 
  Country: None (occurrence: None)
  Receive Date: 20090116
  Receipt Date: 20090109
  Transmission Date: 20090719
  Serious: Yes (Hospitalization, Disabling, Other)
  Sender: FDA-Public Use
  Company Number: BR-PFIZER INC-2008152960

PATIENT

DRUGS (1)
  1. CELEBRA [Suspect]
     Indication: ARTHRITIS
     Dosage: UNK
     Route: 048
     Dates: end: 20081201

REACTIONS (6)
  - BLISTER [None]
  - DEHYDRATION [None]
  - DRUG HYPERSENSITIVITY [None]
  - ERYTHEMA [None]
  - FEELING HOT [None]
  - SKIN LESION [None]
